FAERS Safety Report 9157364 (Version 2)
Quarter: 2013Q2

REPORT INFORMATION
  Report Type: Spontaneous
  Country: BR (occurrence: BR)
  Receive Date: 20130312
  Receipt Date: 20130419
  Transmission Date: 20140414
  Serious: Yes (Hospitalization, Other)
  Sender: FDA-Public Use
  Company Number: BR-NOVOPROD-372559

PATIENT
  Sex: Female

DRUGS (12)
  1. LEVEMIR FLEXPEN [Suspect]
     Indication: TYPE 2 DIABETES MELLITUS
     Dosage: 30 IU, QD (IN THE MORNING)
     Route: 058
     Dates: start: 201302
  2. LEVEMIR FLEXPEN [Suspect]
     Dosage: UNKNOWN
     Route: 058
  3. NOVORAPID [Concomitant]
     Indication: TYPE 2 DIABETES MELLITUS
     Dosage: UNKNOWN
     Route: 065
  4. AAS [Concomitant]
     Dosage: UNK
     Route: 048
  5. LOTAR                              /01121602/ [Concomitant]
     Indication: HYPERTENSION
     Dosage: UNK
     Route: 048
  6. LEVOTHYROXINE [Concomitant]
     Indication: THYROID DISORDER
     Dosage: UNK
     Route: 048
  7. RETEMIC [Concomitant]
     Indication: URINARY INCONTINENCE
     Dosage: UNK
     Route: 048
  8. HYDROCHLOROTHIAZIDE [Concomitant]
     Indication: HYPERTENSION
     Dosage: UNK
     Route: 048
  9. FLUOXETINE [Concomitant]
     Indication: ANXIETY
     Dosage: UNK
     Route: 048
  10. ATENOLOL [Concomitant]
     Indication: HYPERTENSION
     Dosage: UNK
     Route: 048
  11. CENTRUM                            /02217401/ [Concomitant]
     Dosage: UNK
     Route: 048
  12. NPH INSULIN [Concomitant]

REACTIONS (1)
  - Epistaxis [Recovered/Resolved]
